FAERS Safety Report 11372689 (Version 1)
Quarter: 2015Q3

REPORT INFORMATION
  Report Type: Spontaneous
  Country: US (occurrence: US)
  Receive Date: 20150811
  Receipt Date: 20150811
  Transmission Date: 20151125
  Serious: No
  Sender: FDA-Public Use
  Company Number: US-ELI_LILLY_AND_COMPANY-US201208006449

PATIENT
  Sex: Male

DRUGS (3)
  1. AXIRON [Suspect]
     Active Substance: TESTOSTERONE
     Dosage: 4 PUMPS QD
     Dates: start: 201202
  2. AXIRON [Suspect]
     Active Substance: TESTOSTERONE
     Dosage: 6 PUMPS QD
     Dates: start: 201202
  3. AXIRON [Suspect]
     Active Substance: TESTOSTERONE
     Indication: BLOOD TESTOSTERONE DECREASED
     Dosage: 2 PUMPS QD
     Dates: start: 201202

REACTIONS (2)
  - Accidental overdose [Unknown]
  - Drug ineffective [Unknown]
